FAERS Safety Report 7970465-7 (Version None)
Quarter: 2011Q4

REPORT INFORMATION
  Report Type: 
  Country: None (occurrence: None)
  Receive Date: 20111212
  Receipt Date: 20111206
  Transmission Date: 20120403
  Serious: Yes (Hospitalization)
  Sender: FDA-Public Use
  Company Number: PHHY2011DE099398

PATIENT
  Sex: Male

DRUGS (1)
  1. EXTAVIA [Suspect]
     Indication: MULTIPLE SCLEROSIS
     Dosage: 0.75 ML, QOD
     Route: 058
     Dates: start: 20111011, end: 20111109

REACTIONS (4)
  - MULTIPLE SCLEROSIS RELAPSE [None]
  - PYREXIA [None]
  - URINARY RETENTION [None]
  - GAIT DISTURBANCE [None]
